FAERS Safety Report 15233418 (Version 1)
Quarter: 2018Q3

REPORT INFORMATION
  Report Type: Spontaneous
  Country: US (occurrence: US)
  Receive Date: 20180802
  Receipt Date: 20180802
  Transmission Date: 20181010
  Serious: Yes (Other)
  Sender: FDA-Public Use
  Company Number: US-AKORN PHARMACEUTICALS-2018AKN01018

PATIENT
  Age: 19 Year
  Sex: Female
  Weight: 81.18 kg

DRUGS (8)
  1. MYORISAN [Suspect]
     Active Substance: ISOTRETINOIN
     Indication: ACNE
     Dosage: 20 MG, 1X/DAY IN THE MORNING
     Route: 048
     Dates: start: 20180402, end: 20180705
  2. SPRINTEC [Concomitant]
     Active Substance: ETHINYL ESTRADIOL\NORGESTIMATE
  3. CLARAVIS [Suspect]
     Active Substance: ISOTRETINOIN
     Dosage: 40 MG, 1X/DAY AT BEDTIME
     Route: 048
     Dates: start: 20180212, end: 20180705
  4. IBUPROFEN. [Concomitant]
     Active Substance: IBUPROFEN
     Dosage: 600 MG, 2X/DAY AS NEEDED, 5 DAYS PRIOR TO ONSET OF MENSES
  5. MYORISAN [Suspect]
     Active Substance: ISOTRETINOIN
     Indication: ACNE
     Dosage: 40 MG, 1X/DAY AT BEDTIME
     Route: 048
     Dates: start: 20180402, end: 20180705
  6. CLARAVIS [Suspect]
     Active Substance: ISOTRETINOIN
     Dosage: 20 MG, 1X/DAY IN THE MORNING
     Route: 048
     Dates: end: 20180705
  7. CLARAVIS [Suspect]
     Active Substance: ISOTRETINOIN
     Dosage: 20 MG, 2X/DAY
     Route: 048
     Dates: start: 20180212, end: 20180705
  8. FISH OIL [Concomitant]
     Active Substance: FISH OIL
     Dosage: 2 G, 1X/DAY

REACTIONS (6)
  - Acne [Unknown]
  - Lip haemorrhage [Unknown]
  - Chapped lips [Unknown]
  - Crying [Unknown]
  - Lip dry [Unknown]
  - Arthralgia [Unknown]

NARRATIVE: CASE EVENT DATE: 2018
